FAERS Safety Report 6215578-5 (Version None)
Quarter: 2009Q2

REPORT INFORMATION
  Report Type: 
  Country: None (occurrence: None)
  Receive Date: 20090605
  Receipt Date: 20090527
  Transmission Date: 20091009
  Serious: Yes (Hospitalization, Other)
  Sender: FDA-Public Use
  Company Number: US-JNJFOC-20090302150

PATIENT
  Sex: Female
  Weight: 99.79 kg

DRUGS (7)
  1. REMICADE [Suspect]
     Route: 042
  2. REMICADE [Suspect]
     Route: 042
  3. REMICADE [Suspect]
     Indication: RHEUMATOID ARTHRITIS
     Route: 042
  4. INSULIN PUMP [Concomitant]
     Indication: DIABETES MELLITUS
  5. NOVOLOG [Concomitant]
     Indication: DIABETES MELLITUS
  6. NAPROSEN [Concomitant]
  7. ARAVA [Concomitant]

REACTIONS (10)
  - ASTHENIA [None]
  - COUGH [None]
  - DIABETIC KETOACIDOSIS [None]
  - DIZZINESS [None]
  - DRUG INEFFECTIVE [None]
  - FATIGUE [None]
  - HEADACHE [None]
  - INFUSION RELATED REACTION [None]
  - NAUSEA [None]
  - PRURITUS [None]
